FAERS Safety Report 12191839 (Version 3)
Quarter: 2016Q2

REPORT INFORMATION
  Report Type: Spontaneous
  Country: US (occurrence: US)
  Receive Date: 20160318
  Receipt Date: 20160418
  Transmission Date: 20160815
  Serious: No
  Sender: FDA-Public Use
  Company Number: US-PFIZER INC-2016162587

PATIENT
  Age: 80 Year
  Sex: Female
  Weight: 68 kg

DRUGS (4)
  1. NICOTROL [Suspect]
     Active Substance: NICOTINE
     Indication: SMOKING CESSATION THERAPY
     Dosage: 10 MG, UNK
     Dates: start: 20160305
  2. NICOTROL [Suspect]
     Active Substance: NICOTINE
     Dosage: 10 MG, UNK
  3. NICOTROL [Suspect]
     Active Substance: NICOTINE
     Dosage: 10 MG, UNK
     Dates: start: 20160310
  4. NICOTROL [Suspect]
     Active Substance: NICOTINE
     Dosage: 10 MG, UNK

REACTIONS (1)
  - Drug ineffective [Unknown]

NARRATIVE: CASE EVENT DATE: 20160305
